FAERS Safety Report 14685832 (Version 2)
Quarter: 2018Q2

REPORT INFORMATION
  Report Type: Spontaneous
  Country: US (occurrence: US)
  Receive Date: 20180327
  Receipt Date: 20180406
  Transmission Date: 20180711
  Serious: No
  Sender: FDA-Public Use
  Company Number: US-B.I. PHARMACEUTICALS,INC./RIDGEFIELD-2018-BI-015721

PATIENT
  Age: 55 Year
  Sex: Female

DRUGS (1)
  1. SPIRIVA [Suspect]
     Active Substance: TIOTROPIUM BROMIDE MONOHYDRATE
     Indication: ASTHMA
     Dosage: FORM STRENGTH: 18 MCG; ? ADMINISTRATION CORRECT? NO ?ACTION(S) TAKEN WITH PRODUCT: DOSE NOT CHANGED
     Route: 055
     Dates: start: 201709

REACTIONS (3)
  - Product use in unapproved indication [Unknown]
  - Product physical issue [Unknown]
  - Extra dose administered [Recovered/Resolved]

NARRATIVE: CASE EVENT DATE: 201709
